FAERS Safety Report 11175603 (Version 1)
Quarter: 2015Q2

REPORT INFORMATION
  Report Type: Spontaneous
  Country: GB (occurrence: GB)
  Receive Date: 20150609
  Receipt Date: 20150609
  Transmission Date: 20150821
  Serious: Yes (Other)
  Sender: FDA-Public Use
  Company Number: GB-GLAXOSMITHKLINE INC.-GB2015077666

PATIENT
  Age: 12 Year
  Sex: Female

DRUGS (4)
  1. DUAC [Suspect]
     Active Substance: BENZOYL PEROXIDE\CLINDAMYCIN PHOSPHATE
     Route: 061
     Dates: start: 20150528
  2. ERYTHROMYCIN. [Concomitant]
     Active Substance: ERYTHROMYCIN
     Dosage: APPLY TWICE DAILY
     Dates: start: 20150528
  3. BENZOYL PEROXIDE. [Concomitant]
     Active Substance: BENZOYL PEROXIDE
     Dosage: APPLY AT NIGHT
     Dates: start: 20150526
  4. ADAPALENE. [Concomitant]
     Active Substance: ADAPALENE
     Dosage: APPLY ONCE DAILY
     Dates: start: 20150226

REACTIONS (2)
  - Swelling face [Recovering/Resolving]
  - Urticaria [Recovering/Resolving]

NARRATIVE: CASE EVENT DATE: 20150528
